FAERS Safety Report 8804974 (Version 1)
Quarter: 2012Q4

REPORT INFORMATION
  Report Type: 
  Country: GB (occurrence: GB)
  Receive Date: 20120924
  Receipt Date: 20120924
  Transmission Date: 20130627
  Serious: Yes (Life-Threatening, Hospitalization, Other)
  Sender: FDA-Public Use
  Company Number: GB-ROCHE-1127618

PATIENT
  Age: 75 Year
  Sex: Female

DRUGS (5)
  1. ACTILYSE [Suspect]
     Indication: THROMBOLYSIS
     Route: 013
     Dates: start: 20120824, end: 20120824
  2. ASPIRIN [Concomitant]
  3. CLEXANE [Concomitant]
  4. PARACETAMOL [Concomitant]
  5. SIMVASTATIN [Concomitant]

REACTIONS (4)
  - Bradycardia [Recovering/Resolving]
  - Hypersensitivity [Recovering/Resolving]
  - Hypotension [Recovering/Resolving]
  - Vasodilatation [Recovering/Resolving]
